FAERS Safety Report 4973300-4 (Version None)
Quarter: 2006Q2

REPORT INFORMATION
  Report Type: 
  Country: None (occurrence: None)
  Receive Date: 20060414
  Receipt Date: 20060404
  Transmission Date: 20061013
  Serious: Yes (Hospitalization)
  Sender: FDA-Public Use
  Company Number: JP-JNJFOC-20060301927

PATIENT
  Sex: Female
  Weight: 30 kg

DRUGS (7)
  1. RISPERDAL [Suspect]
     Route: 048
  2. RISPERDAL [Suspect]
     Route: 048
  3. RISPERDAL [Suspect]
     Route: 048
  4. RISPERDAL [Suspect]
     Route: 048
  5. RISPERDAL [Suspect]
     Indication: AUTISM
     Route: 048
  6. VALPROATE SODIUM [Suspect]
     Indication: EPILEPSY
     Route: 048
  7. BIPERIDEN HYDROCHLORIDE TAB [Suspect]
     Indication: DRUG USE FOR UNKNOWN INDICATION
     Route: 048

REACTIONS (17)
  - ALANINE AMINOTRANSFERASE INCREASED [None]
  - ARRHYTHMIA [None]
  - ASPARTATE AMINOTRANSFERASE INCREASED [None]
  - BLOOD GLUCOSE INCREASED [None]
  - CONVULSION [None]
  - CORNEAL OPACITY [None]
  - DEHYDRATION [None]
  - DIZZINESS [None]
  - EPILEPSY [None]
  - FALL [None]
  - GASTROENTERITIS [None]
  - HYPOAESTHESIA [None]
  - OPTIC ATROPHY [None]
  - PLATELET COUNT DECREASED [None]
  - SEROTONIN SYNDROME [None]
  - TONIC CONVULSION [None]
  - WHITE BLOOD CELL COUNT DECREASED [None]
